FAERS Safety Report 6371507-5 (Version None)
Quarter: 2009Q3

REPORT INFORMATION
  Report Type: 
  Country: None (occurrence: None)
  Receive Date: 20090923
  Receipt Date: 20080115
  Transmission Date: 20100115
  Serious: No
  Sender: FDA-Public Use
  Company Number: US-ASTRAZENECA-2007UW24436

PATIENT
  Age: 16944 Day
  Sex: Female
  Weight: 79.4 kg

DRUGS (19)
  1. SEROQUEL [Suspect]
     Indication: POST-TRAUMATIC STRESS DISORDER
     Dosage: 100 MG, 150 MG, 200 MG, 300 MG
     Route: 048
     Dates: start: 20010801, end: 20070401
  2. SEROQUEL [Suspect]
     Indication: INSOMNIA
     Dosage: 100 MG, 150 MG, 200 MG, 300 MG
     Route: 048
     Dates: start: 20010801, end: 20070401
  3. SEROQUEL [Suspect]
     Dosage: 25MG-300MG
     Route: 048
  4. SEROQUEL [Suspect]
     Dosage: 25MG-300MG
     Route: 048
  5. LORAZEPAM [Concomitant]
  6. NAPROXEN [Concomitant]
  7. METFORMIN HCL [Concomitant]
  8. DIAZEPAM [Concomitant]
  9. AMBIEN [Concomitant]
  10. ALPRAZOLAM [Concomitant]
  11. PREVACID [Concomitant]
  12. FLEXERIL [Concomitant]
  13. TRICOR [Concomitant]
  14. SINGULAIR [Concomitant]
  15. PRECOSE [Concomitant]
  16. PREMARIN [Concomitant]
  17. SERZONE [Concomitant]
  18. HYDROCODONE [Concomitant]
  19. LIPITOR [Concomitant]

REACTIONS (19)
  - ABDOMINAL PAIN UPPER [None]
  - ARTHRALGIA [None]
  - ARTHRITIS [None]
  - BACK PAIN [None]
  - BLOOD CHOLESTEROL INCREASED [None]
  - BLOOD PRESSURE INCREASED [None]
  - BRONCHITIS [None]
  - CHEST DISCOMFORT [None]
  - CHEST PAIN [None]
  - CHRONIC OBSTRUCTIVE PULMONARY DISEASE [None]
  - DERMATITIS [None]
  - DIABETES MELLITUS [None]
  - DYSPHAGIA [None]
  - IRRITABLE BOWEL SYNDROME [None]
  - MUSCULOSKELETAL PAIN [None]
  - NEURALGIA [None]
  - OBESITY [None]
  - PNEUMONIA [None]
  - UPPER RESPIRATORY TRACT INFECTION [None]
